FAERS Safety Report 4804091-5 (Version None)
Quarter: 2005Q4

REPORT INFORMATION
  Report Type: 
  Country: None (occurrence: None)
  Receive Date: 20051014
  Receipt Date: 20051007
  Transmission Date: 20060501
  Serious: Yes (Hospitalization)
  Sender: FDA-Public Use
  Company Number: 234536K05USA

PATIENT
  Age: 45 Year
  Sex: Female

DRUGS (2)
  1. REBIF (INTERFERON BETA) [Suspect]
     Indication: MULTIPLE SCLEROSIS
     Dosage: 44 MCG, 3 IN 1 WEEKS, SUBCUTANEOUS
     Route: 058
     Dates: start: 20041130
  2. BACLOFEN [Concomitant]

REACTIONS (11)
  - ASTHENIA [None]
  - BEDRIDDEN [None]
  - CHOLECYSTITIS INFECTIVE [None]
  - DIARRHOEA [None]
  - INCONTINENCE [None]
  - LIVING IN RESIDENTIAL INSTITUTION [None]
  - MUSCULOSKELETAL STIFFNESS [None]
  - PAIN [None]
  - POST PROCEDURAL BILE LEAK [None]
  - RESPIRATORY ARREST [None]
  - URINARY TRACT INFECTION [None]
